FAERS Safety Report 20632396 (Version 1)
Quarter: 2022Q1

REPORT INFORMATION
  Report Type: Spontaneous
  Country: US (occurrence: US)
  Receive Date: 20220324
  Receipt Date: 20220324
  Transmission Date: 20220423
  Serious: No
  Sender: FDA-Public Use
  Company Number: US-PFIZER INC-202200321961

PATIENT
  Age: 69 Year
  Sex: Male

DRUGS (6)
  1. TOVIAZ [Suspect]
     Active Substance: FESOTERODINE FUMARATE
     Indication: Pollakiuria
     Dosage: 8 MG, 1X/DAY (QUANTITY FOR 90 DAYS: 90)
  2. TOVIAZ [Suspect]
     Active Substance: FESOTERODINE FUMARATE
     Indication: Hypertonic bladder
  3. TOVIAZ [Suspect]
     Active Substance: FESOTERODINE FUMARATE
     Indication: Prostate cancer
  4. ENABLEX [Concomitant]
     Active Substance: DARIFENACIN HYDROBROMIDE
     Dosage: UNK
  5. VESICARE [Concomitant]
     Active Substance: SOLIFENACIN SUCCINATE
     Dosage: UNK
  6. SANCTURA [Concomitant]
     Active Substance: TROSPIUM CHLORIDE
     Dosage: UNK

REACTIONS (4)
  - Dry mouth [Unknown]
  - Nocturia [Unknown]
  - Back pain [Unknown]
  - Off label use [Unknown]
